FAERS Safety Report 12717020 (Version 1)
Quarter: 2016Q3

REPORT INFORMATION
  Report Type: Spontaneous
  Country: US (occurrence: US)
  Receive Date: 20160902
  Receipt Date: 20160902
  Transmission Date: 20161109
  Serious: Yes (Hospitalization)
  Sender: FDA-Public Use
  Company Number: None

PATIENT
  Age: 24 Year
  Sex: Female
  Weight: 72.3 kg

DRUGS (21)
  1. TYLENOL [Concomitant]
     Active Substance: ACETAMINOPHEN
  2. LABETALOL (TRANDATE) [Concomitant]
  3. HEPARIN [Concomitant]
     Active Substance: HEPARIN SODIUM
  4. ROMETHAZINE (PHENERGAN) [Concomitant]
  5. CALCIUM CARBONATE. [Concomitant]
     Active Substance: CALCIUM CARBONATE
  6. ONDANSETRON (ZOFRAN QDT) [Concomitant]
  7. KLOR-CON [Concomitant]
     Active Substance: POTASSIUM CHLORIDE
  8. MS CONTIN [Concomitant]
     Active Substance: MORPHINE SULFATE
  9. TENOFOVIR (VIREAD) [Concomitant]
  10. RITUXIMAB 1000 MG IN SODIUM CHLORIDE [Suspect]
     Active Substance: RITUXIMAB
     Indication: LUPUS NEPHRITIS
     Route: 042
     Dates: start: 20160301, end: 20160302
  11. DIPHENHYDRAMINE. [Concomitant]
     Active Substance: DIPHENHYDRAMINE
  12. NIFEDIPINE (ADALAT CC, PROCARDIA XL) [Concomitant]
  13. MIRALAX [Concomitant]
     Active Substance: POLYETHYLENE GLYCOL 3350
  14. SODIUM CHLORIDE (HOMEINF) [Concomitant]
  15. ALTEPLASE [Concomitant]
     Active Substance: ALTEPLASE
  16. DULOXETINE (IRENKA) [Concomitant]
  17. DILAUDID [Concomitant]
     Active Substance: HYDROMORPHONE HYDROCHLORIDE
  18. COUMADIN [Concomitant]
     Active Substance: WARFARIN SODIUM
  19. PLAQUENIL [Concomitant]
     Active Substance: HYDROXYCHLOROQUINE SULFATE
  20. KEPPRA [Concomitant]
     Active Substance: LEVETIRACETAM
  21. ERGOCALCIFEROL (DRISDOL) [Concomitant]

REACTIONS (7)
  - Pancreatitis [None]
  - Weight decreased [None]
  - Urine output decreased [None]
  - Drug ineffective [None]
  - Nausea [None]
  - Vomiting [None]
  - Hypophagia [None]

NARRATIVE: CASE EVENT DATE: 20160301
